FAERS Safety Report 25934032 (Version 2)
Quarter: 2025Q4

REPORT INFORMATION
  Report Type: Spontaneous
  Country: NZ (occurrence: NZ)
  Receive Date: 20251017
  Receipt Date: 20251202
  Transmission Date: 20260118
  Serious: Yes (Other)
  Sender: TAKEDA
  Company Number: NZ-TAKEDA-2025TUS089614

PATIENT
  Age: 85 Year
  Sex: Female

DRUGS (2)
  1. ENTYVIO [Suspect]
     Active Substance: VEDOLIZUMAB
     Indication: Product used for unknown indication
     Dosage: 300 MILLIGRAM
  2. ENTYVIO [Suspect]
     Active Substance: VEDOLIZUMAB
     Dosage: 300 MILLIGRAM, Q6WEEKS

REACTIONS (4)
  - Tubulointerstitial nephritis [Unknown]
  - Renal tubular necrosis [Unknown]
  - Polyuria [Unknown]
  - Dehydration [Unknown]
